FAERS Safety Report 4266963-2 (Version None)
Quarter: 2004Q1

REPORT INFORMATION
  Report Type: 
  Country: None (occurrence: None)
  Receive Date: 20040107
  Receipt Date: 20031226
  Transmission Date: 20041129
  Serious: Yes (Disabling)
  Sender: FDA-Public Use
  Company Number: CIP03002383

PATIENT
  Age: 65 Year
  Sex: Female

DRUGS (4)
  1. BENET(RISEDRONATE SODIUM) TABLET, 2.5 MG [Suspect]
     Indication: OSTEOPOROSIS
     Dosage: 2.5 MG DAILY, ORAL
     Route: 048
     Dates: start: 20030410, end: 20030424
  2. BENET(RISEDRONATE SODIUM) TABLET, 2.5 MG [Suspect]
     Indication: OSTEOPOROSIS
     Dosage: 2.5 MG DAILY, ORAL
     Route: 048
     Dates: start: 20030426, end: 20030508
  3. LOXONIN (LOXOPROFEN SODIUM) [Concomitant]
  4. MESADORIN S (SODIUM GUALENATE) [Concomitant]

REACTIONS (3)
  - ANOSMIA [None]
  - PAROSMIA [None]
  - RHINITIS ALLERGIC [None]
